FAERS Safety Report 19047388 (Version 3)
Quarter: 2023Q2

REPORT INFORMATION
  Report Type: Report from Study
  Country: CA (occurrence: CA)
  Receive Date: 20210323
  Receipt Date: 20230417
  Transmission Date: 20230721
  Serious: Yes (Other)
  Sender: FDA-Public Use
  Company Number: CA-TAKEDA-2020TUS045731

PATIENT
  Age: 59 Year
  Sex: Male

DRUGS (9)
  1. ICATIBANT [Suspect]
     Active Substance: ICATIBANT ACETATE
     Indication: Hereditary angioedema
     Dosage: 30 MILLIGRAM
     Route: 065
     Dates: start: 20200919
  2. ICATIBANT [Suspect]
     Active Substance: ICATIBANT ACETATE
     Indication: Hereditary angioedema
     Dosage: 30 MILLIGRAM
     Route: 065
     Dates: start: 20200919
  3. ICATIBANT [Suspect]
     Active Substance: ICATIBANT ACETATE
     Dosage: 30 MILLIGRAM
     Route: 065
     Dates: start: 20200919
  4. ICATIBANT [Suspect]
     Active Substance: ICATIBANT ACETATE
     Dosage: 30 MILLIGRAM
     Route: 065
     Dates: start: 20200919
  5. ICATIBANT [Suspect]
     Active Substance: ICATIBANT ACETATE
     Dosage: 30 MILLIGRAM
     Route: 065
     Dates: start: 20200919
  6. ICATIBANT [Suspect]
     Active Substance: ICATIBANT ACETATE
     Dosage: 30 MILLIGRAM
     Route: 065
     Dates: start: 20200919
  7. ICATIBANT [Suspect]
     Active Substance: ICATIBANT ACETATE
     Dosage: 30 MILLIGRAM
     Route: 050
     Dates: start: 20200919
  8. ICATIBANT [Suspect]
     Active Substance: ICATIBANT ACETATE
     Dosage: 30 MILLIGRAM
     Route: 050
     Dates: start: 20200919
  9. RITUXIMAB [Concomitant]
     Active Substance: RITUXIMAB
     Indication: Blood disorder
     Dosage: UNK
     Dates: start: 202102

REACTIONS (9)
  - Hereditary angioedema [Recovered/Resolved]
  - Blood disorder [Not Recovered/Not Resolved]
  - Inguinal hernia [Unknown]
  - Swollen tongue [Recovered/Resolved]
  - Fatigue [Not Recovered/Not Resolved]
  - Injection site mass [Recovered/Resolved]
  - Tongue pruritus [Recovered/Resolved]
  - Pruritus [Recovered/Resolved]
  - Expired product administered [Recovered/Resolved]

NARRATIVE: CASE EVENT DATE: 20201022
